FAERS Safety Report 17007507 (Version 7)
Quarter: 2022Q2

REPORT INFORMATION
  Report Type: Report from Study
  Country: JP (occurrence: JP)
  Receive Date: 20191108
  Receipt Date: 20220613
  Transmission Date: 20220721
  Serious: Yes (Hospitalization, Other)
  Sender: FDA-Public Use
  Company Number: JP-KYOWAKIRIN-2019AKK017241

PATIENT
  Age: 84 Year
  Sex: Male

DRUGS (28)
  1. DARBEPOETIN ALFA [Suspect]
     Active Substance: DARBEPOETIN ALFA
     Indication: Myelodysplastic syndrome
     Dosage: 120 MICROGRAM
     Route: 058
     Dates: start: 20180907, end: 20180907
  2. DARBEPOETIN ALFA [Suspect]
     Active Substance: DARBEPOETIN ALFA
     Dosage: 180 MICROGRAM, QWK
     Route: 058
     Dates: start: 20180914, end: 20180928
  3. DARBEPOETIN ALFA [Suspect]
     Active Substance: DARBEPOETIN ALFA
     Dosage: 180 MICROGRAM, QWK
     Route: 058
     Dates: start: 20181201, end: 20181228
  4. DARBEPOETIN ALFA [Suspect]
     Active Substance: DARBEPOETIN ALFA
     Dosage: 180 MICROGRAM, Q4WK
     Route: 058
     Dates: start: 20190111, end: 20190208
  5. DARBEPOETIN ALFA [Suspect]
     Active Substance: DARBEPOETIN ALFA
     Dosage: 180 MICROGRAM, Q2WK
     Route: 058
     Dates: start: 20190214, end: 20190301
  6. DARBEPOETIN ALFA [Suspect]
     Active Substance: DARBEPOETIN ALFA
     Dosage: 180 MICROGRAM, QWK
     Route: 058
     Dates: start: 20190308, end: 20190425
  7. DARBEPOETIN ALFA [Suspect]
     Active Substance: DARBEPOETIN ALFA
     Dosage: 180 MICROGRAM
     Route: 058
     Dates: start: 20190507, end: 20190507
  8. DARBEPOETIN ALFA [Suspect]
     Active Substance: DARBEPOETIN ALFA
     Dosage: 180 MICROGRAM, Q2WK
     Route: 058
     Dates: start: 20190517, end: 20190531
  9. DARBEPOETIN ALFA [Suspect]
     Active Substance: DARBEPOETIN ALFA
     Dosage: 180 MICROGRAM, Q4WK
     Route: 058
     Dates: start: 20190706, end: 20191025
  10. DARBEPOETIN ALFA [Suspect]
     Active Substance: DARBEPOETIN ALFA
     Dosage: 180 MICROGRAM, Q4WK
     Route: 058
     Dates: start: 20200122, end: 20200417
  11. DARBEPOETIN ALFA [Suspect]
     Active Substance: DARBEPOETIN ALFA
     Dosage: 180 MICROGRAM, Q4WK
     Route: 058
     Dates: start: 20200612, end: 20200904
  12. DARBEPOETIN ALFA [Suspect]
     Active Substance: DARBEPOETIN ALFA
     Dosage: 180 MICROGRAM
     Route: 058
     Dates: start: 20201030, end: 20201030
  13. DARBEPOETIN ALFA [Suspect]
     Active Substance: DARBEPOETIN ALFA
     Dosage: 180 MICROGRAM
     Route: 058
     Dates: start: 20201228, end: 20201228
  14. DARBEPOETIN ALFA [Suspect]
     Active Substance: DARBEPOETIN ALFA
     Dosage: 180 MICROGRAM
     Route: 058
     Dates: start: 20210601, end: 20210601
  15. PREDNISOLONE [Suspect]
     Active Substance: PREDNISOLONE
     Indication: Product used for unknown indication
     Dosage: UNK
     Route: 065
  16. TRESIBA [Concomitant]
     Active Substance: INSULIN DEGLUDEC
     Indication: Type 1 diabetes mellitus
     Dosage: 13 INTERNATIONAL UNIT
     Route: 065
     Dates: end: 20210601
  17. NAFTOPIDIL [Concomitant]
     Active Substance: NAFTOPIDIL
     Indication: Benign prostatic hyperplasia
     Dosage: 25 MILLIGRAM
     Route: 048
     Dates: end: 201811
  18. IMIDAFENACIN [Concomitant]
     Active Substance: IMIDAFENACIN
     Indication: Hypertonic bladder
     Dosage: 0.2 MG
     Route: 048
     Dates: end: 20210601
  19. FLUNITRAZEPAM [Concomitant]
     Active Substance: FLUNITRAZEPAM
     Indication: Insomnia
     Dosage: 1 MG
     Route: 048
     Dates: end: 20190926
  20. LUNESTA [Concomitant]
     Active Substance: ESZOPICLONE
     Indication: Insomnia
     Dosage: 1 MG
     Route: 048
     Dates: end: 20210601
  21. ROZEREM [Concomitant]
     Active Substance: RAMELTEON
     Indication: Insomnia
     Dosage: 8 MG
     Route: 048
     Dates: end: 20210601
  22. VALSARTAN [Concomitant]
     Active Substance: VALSARTAN
     Indication: Hypertension
     Dosage: 160 MG
     Route: 048
     Dates: start: 201811, end: 201902
  23. OMEPRAZOLE [Concomitant]
     Active Substance: OMEPRAZOLE
     Indication: Product used for unknown indication
     Dosage: 10 MG
     Route: 048
     Dates: start: 201812, end: 20210601
  24. TAMSULOSIN HYDROCHLORIDE [Concomitant]
     Active Substance: TAMSULOSIN HYDROCHLORIDE
     Indication: Benign prostatic hyperplasia
     Dosage: 0.2 MG
     Route: 048
     Dates: start: 201812, end: 20210601
  25. ZOLPIDEM TARTRATE [Concomitant]
     Active Substance: ZOLPIDEM TARTRATE
     Indication: Insomnia
     Dosage: 5 MG
     Route: 048
     Dates: start: 20190927, end: 20210601
  26. AMLODIPINE [Concomitant]
     Active Substance: AMLODIPINE BESYLATE
     Indication: Hypertension
     Dosage: 5 MG
     Route: 048
     Dates: end: 20210601
  27. OLMESARTAN [Concomitant]
     Active Substance: OLMESARTAN
     Indication: Hypertension
     Dosage: 40 MG
     Route: 048
     Dates: end: 201811
  28. Chimaphila umbellata extract;Equisetum arvense extract;Populus alba ex [Concomitant]
     Indication: Benign prostatic hyperplasia
     Dosage: 3 DF
     Route: 048
     Dates: end: 20210601

REACTIONS (18)
  - Pyrexia [Recovering/Resolving]
  - Spinal compression fracture [Recovering/Resolving]
  - Road traffic accident [Recovering/Resolving]
  - Autoinflammatory disease [Recovered/Resolved]
  - Bacterial infection [Recovered/Resolved]
  - Spinal compression fracture [Recovering/Resolving]
  - Cholecystitis [Recovering/Resolving]
  - Pneumonia aspiration [Unknown]
  - Cataract [Recovering/Resolving]
  - Cholelithiasis [Recovering/Resolving]
  - Pneumonia [Recovered/Resolved]
  - Urinary tract infection [Unknown]
  - Fall [Recovering/Resolving]
  - Myalgia [Recovering/Resolving]
  - Blood alkaline phosphatase increased [Unknown]
  - Osteoporosis [Unknown]
  - Pyrexia [Unknown]
  - Pyrexia [Recovering/Resolving]

NARRATIVE: CASE EVENT DATE: 20180907
